FAERS Safety Report 4341151-X (Version None)
Quarter: 2004Q2

REPORT INFORMATION
  Report Type: 
  Country: None (occurrence: None)
  Receive Date: 20040419
  Receipt Date: 20040317
  Transmission Date: 20050107
  Serious: Yes (Other)
  Sender: FDA-Public Use
  Company Number: FR-GLAXOSMITHKLINE-B0327034A

PATIENT
  Age: 41 Year
  Sex: Female

DRUGS (1)
  1. ZYBAN [Suspect]
     Indication: SMOKING CESSATION THERAPY
     Dosage: 150MG UNKNOWN
     Route: 048
     Dates: start: 20030601, end: 20030701

REACTIONS (11)
  - ANTI-THYROID ANTIBODY POSITIVE [None]
  - ARTHRALGIA [None]
  - BLOOD CORTISOL INCREASED [None]
  - CHROMOSOMAL MUTATION [None]
  - CYTOLYTIC HEPATITIS [None]
  - DERMATITIS BULLOUS [None]
  - HYPOTHYROIDISM [None]
  - PORPHYRIA NON-ACUTE [None]
  - PORPHYRINURIA [None]
  - SCAR [None]
  - SERUM FERRITIN INCREASED [None]
